FAERS Safety Report 17147328 (Version 1)
Quarter: 2019Q4

REPORT INFORMATION
  Report Type: Report from Study
  Country: DE (occurrence: DE)
  Receive Date: 20191212
  Receipt Date: 20191212
  Transmission Date: 20200122
  Serious: Yes (Hospitalization)
  Sender: FDA-Public Use
  Company Number: DE-FRESENIUS KABI-FK201913503

PATIENT
  Age: 79 Year
  Sex: Female

DRUGS (2)
  1. GLYCINE/ALANINE/SERINE/TYROSINE/LEUCINE/METHIONINE/PHENYLALANINE/HISTIDINE/VALINE/THREONINE/TRYPTOPH [Concomitant]
     Active Substance: AMINO ACIDS, SOURCE UNSPECIFIED
     Route: 042
  2. POTASSIUM CHLORIDE 1M [Suspect]
     Active Substance: POTASSIUM CHLORIDE
     Indication: CATHETER MANAGEMENT
     Route: 042
     Dates: start: 20191203, end: 20191203

REACTIONS (4)
  - Wrong product administered [Recovered/Resolved]
  - Feeling hot [Recovered/Resolved]
  - Malaise [Recovered/Resolved]
  - Paraesthesia [Recovered/Resolved]

NARRATIVE: CASE EVENT DATE: 20191203
